FAERS Safety Report 10902430 (Version 1)
Quarter: 2015Q1

REPORT INFORMATION
  Report Type: Report from Study
  Country: MX (occurrence: MX)
  Receive Date: 20150310
  Receipt Date: 20150310
  Transmission Date: 20150721
  Serious: Yes (Other)
  Sender: FDA-Public Use
  Company Number: PHHY2015MX028129

PATIENT
  Age: 91 Year
  Sex: Male

DRUGS (3)
  1. STALEVO [Suspect]
     Active Substance: CARBIDOPA\ENTACAPONE\LEVODOPA
     Indication: ABASIA
     Dosage: 3 DF, QD (125/31.25/200)
     Route: 065
     Dates: start: 201312, end: 201404
  2. AKINETON [Concomitant]
     Active Substance: BIPERIDEN HYDROCHLORIDE
     Indication: PRODUCT USED FOR UNKNOWN INDICATION
     Dosage: 1 OT, QD
     Route: 065
  3. STALEVO [Suspect]
     Active Substance: CARBIDOPA\ENTACAPONE\LEVODOPA
     Dosage: UNKNONW (100/25/200)
     Route: 065

REACTIONS (5)
  - Blood pressure decreased [Unknown]
  - Gait disturbance [Unknown]
  - Product use issue [Unknown]
  - Syncope [Unknown]
  - Malaise [Unknown]

NARRATIVE: CASE EVENT DATE: 201312
